FAERS Safety Report 5317892-4 (Version None)
Quarter: 2007Q2

REPORT INFORMATION
  Report Type: 
  Country: None (occurrence: None)
  Receive Date: 20070507
  Receipt Date: 20070504
  Transmission Date: 20071010
  Serious: Yes (Other)
  Sender: FDA-Public Use
  Company Number: A0647192A

PATIENT
  Age: 69 Year
  Sex: Female

DRUGS (13)
  1. LAMICTAL [Suspect]
     Indication: DEPRESSION
     Dosage: 200MG PER DAY
     Route: 048
     Dates: start: 20060501, end: 20070401
  2. METOCLOPRAMIDE [Suspect]
     Indication: DRUG USE FOR UNKNOWN INDICATION
     Route: 065
  3. VESICARE [Concomitant]
  4. PROTONIX [Concomitant]
  5. ATENOLOL [Concomitant]
  6. FOSAMAX [Concomitant]
  7. ZOCOR [Concomitant]
  8. SONATA [Concomitant]
  9. ASPIRIN [Concomitant]
  10. CENTRUM VITAMIN [Concomitant]
  11. OCUVITE [Concomitant]
  12. FOLIC ACID [Concomitant]
  13. MIRTAZAPINE [Concomitant]

REACTIONS (8)
  - BALANCE DISORDER [None]
  - BLINDNESS [None]
  - DIPLOPIA [None]
  - DIZZINESS [None]
  - HEADACHE [None]
  - NERVOUSNESS [None]
  - TREMOR [None]
  - VISUAL DISTURBANCE [None]
